FAERS Safety Report 9019500 (Version 1)
Quarter: 2013Q1

REPORT INFORMATION
  Report Type: Spontaneous
  Country: US (occurrence: US)
  Receive Date: 20130118
  Receipt Date: 20130118
  Transmission Date: 20140127
  Serious: No
  Sender: FDA-Public Use
  Company Number: US-BAUSCH-2012BL001546

PATIENT
  Age: 5 Year
  Sex: Male

DRUGS (1)
  1. TOBRAMYCIN OPHTHALMIC SOLUTION USP 0.3% [Suspect]
     Indication: CONJUNCTIVITIS
     Route: 047
     Dates: start: 20120302, end: 20120303

REACTIONS (3)
  - Incorrect dose administered [Not Recovered/Not Resolved]
  - Eye pain [Not Recovered/Not Resolved]
  - Mydriasis [Not Recovered/Not Resolved]
